FAERS Safety Report 8112709-7 (Version None)
Quarter: 2012Q1

REPORT INFORMATION
  Report Type: 
  Country: None (occurrence: None)
  Receive Date: 20120203
  Receipt Date: 20120126
  Transmission Date: 20120608
  Serious: Yes (Death)
  Sender: FDA-Public Use
  Company Number: JP-ROCHE-1035570

PATIENT
  Sex: Male
  Weight: 60 kg

DRUGS (9)
  1. ALOSENN [Concomitant]
     Indication: DIARRHOEA
     Route: 048
     Dates: end: 20120102
  2. PACLITAXEL [Suspect]
     Indication: LUNG ADENOCARCINOMA
     Route: 041
     Dates: start: 20100713
  3. NAPROXEN [Concomitant]
     Indication: PAIN
     Route: 048
     Dates: end: 20120102
  4. PURSENNID [Concomitant]
     Indication: DIARRHOEA
     Route: 048
     Dates: end: 20120102
  5. AVASTIN [Suspect]
     Indication: LUNG ADENOCARCINOMA
     Route: 041
     Dates: start: 20100713
  6. MUCOSTA [Concomitant]
     Route: 048
     Dates: end: 20120102
  7. OXYCONTIN [Concomitant]
     Indication: PAIN
     Route: 048
     Dates: end: 20120102
  8. CARBOPLATIN [Suspect]
     Indication: LUNG ADENOCARCINOMA
     Route: 041
     Dates: start: 20100713
  9. MAGMITT [Concomitant]
     Indication: DIARRHOEA
     Route: 048
     Dates: end: 20120102

REACTIONS (4)
  - DISEASE PROGRESSION [None]
  - NON-SMALL CELL LUNG CANCER [None]
  - NEUTROPHIL COUNT DECREASED [None]
  - NEOPLASM PROGRESSION [None]
